FAERS Safety Report 6146329-0 (Version None)
Quarter: 2009Q2

REPORT INFORMATION
  Report Type: 
  Country: None (occurrence: None)
  Receive Date: 20090403
  Receipt Date: 20090403
  Transmission Date: 20091009
  Serious: Yes (Other)
  Sender: FDA-Public Use
  Company Number: None

PATIENT
  Age: 78 Year
  Sex: Male
  Weight: 83.9154 kg

DRUGS (1)
  1. CLINDAMYCIN HCL [Suspect]
     Indication: OSTEOMYELITIS
     Dosage: 300 MG 4 TIMES/DAY ORAL
     Route: 048
     Dates: start: 20090218, end: 20090311

REACTIONS (5)
  - DIARRHOEA [None]
  - GENERALISED ERYTHEMA [None]
  - PRURITUS [None]
  - SKIN EXFOLIATION [None]
  - SKIN ULCER [None]
